FAERS Safety Report 9065768 (Version 1)
Quarter: 2013Q1

REPORT INFORMATION
  Report Type: Spontaneous
  Country: US (occurrence: US)
  Receive Date: 20130214
  Receipt Date: 20130214
  Transmission Date: 20140127
  Serious: Yes (Hospitalization, Disabling)
  Sender: FDA-Public Use
  Company Number: US-BAYER-2013-017477

PATIENT
  Age: 32 Year
  Sex: Female

DRUGS (1)
  1. YAZ [Suspect]
     Dosage: UNK
     Dates: start: 2007

REACTIONS (7)
  - Deep vein thrombosis [None]
  - Pulse pressure decreased [None]
  - Skin discolouration [None]
  - Paraesthesia [None]
  - Arm amputation [None]
  - Amputation stump pain [None]
  - Feeling of despair [None]
